FAERS Safety Report 16760001 (Version 1)
Quarter: 2019Q3

REPORT INFORMATION
  Report Type: Report from Study
  Country: US (occurrence: US)
  Receive Date: 20190830
  Receipt Date: 20190830
  Transmission Date: 20191005
  Serious: Yes (Death)
  Sender: FDA-Public Use
  Company Number: US-BAUSCH-BL-2018-034227

PATIENT
  Age: 38 Year
  Sex: Female

DRUGS (2)
  1. XIFAXAN [Suspect]
     Active Substance: RIFAXIMIN
     Route: 048
     Dates: start: 2018
  2. XIFAXAN [Suspect]
     Active Substance: RIFAXIMIN
     Indication: HEPATIC FAILURE
     Route: 048
     Dates: start: 20181112, end: 201811

REACTIONS (5)
  - Product storage error [Unknown]
  - Death [Fatal]
  - Nausea [Recovering/Resolving]
  - Therapy cessation [Unknown]
  - Product availability issue [Unknown]

NARRATIVE: CASE EVENT DATE: 201811
